FAERS Safety Report 7290413-5 (Version None)
Quarter: 2011Q1

REPORT INFORMATION
  Report Type: 
  Country: None (occurrence: None)
  Receive Date: 20110214
  Receipt Date: 20110204
  Transmission Date: 20110831
  Serious: Yes (Hospitalization, Other)
  Sender: FDA-Public Use
  Company Number: US-JNJFOC-20110202303

PATIENT
  Age: 30 Year
  Sex: Female

DRUGS (2)
  1. PREVACID [Suspect]
     Indication: OESOPHAGITIS
     Route: 048
  2. LEVAQUIN [Suspect]
     Indication: CYSTITIS
     Route: 048

REACTIONS (6)
  - DEHYDRATION [None]
  - HYPERTENSION [None]
  - VOMITING [None]
  - NAUSEA [None]
  - INSOMNIA [None]
  - DYSPEPSIA [None]
